FAERS Safety Report 4676739-X (Version None)
Quarter: 2005Q2

REPORT INFORMATION
  Report Type: 
  Country: None (occurrence: None)
  Receive Date: 20050527
  Receipt Date: 20050513
  Transmission Date: 20051028
  Serious: Yes (Death)
  Sender: FDA-Public Use
  Company Number: 2005077116

PATIENT
  Sex: 0

DRUGS (3)
  1. DIFLUCAN [Suspect]
     Indication: ILL-DEFINED DISORDER
  2. ARICEPT [Suspect]
     Indication: ILL-DEFINED DISORDER
  3. ZYRTEC [Suspect]
     Indication: ILL-DEFINED DISORDER

REACTIONS (1)
  - DEATH [None]
